FAERS Safety Report 5581847-5 (Version None)
Quarter: 2008Q1

REPORT INFORMATION
  Report Type: 
  Country: None (occurrence: None)
  Receive Date: 20080104
  Receipt Date: 20071207
  Transmission Date: 20080703
  Serious: No
  Sender: FDA-Public Use
  Company Number: US-BAYER-200712236BCC

PATIENT
  Sex: Male

DRUGS (3)
  1. ALEVE [Suspect]
     Indication: PROCEDURAL PAIN
     Dosage: UNIT DOSE: 220 MG
     Route: 048
     Dates: start: 20070712
  2. ALEVE [Suspect]
     Dosage: TOTAL DAILY DOSE: 220 MG  UNIT DOSE: 220 MG
     Route: 048
     Dates: start: 20070711
  3. LORTAB [Concomitant]

REACTIONS (6)
  - FALL [None]
  - HYPOAESTHESIA [None]
  - LIMB INJURY [None]
  - MUSCULAR WEAKNESS [None]
  - PAIN [None]
  - PROCEDURAL PAIN [None]
